FAERS Safety Report 9433054 (Version 1)
Quarter: 2013Q3

REPORT INFORMATION
  Report Type: Spontaneous
  Country: US (occurrence: US)
  Receive Date: 20130731
  Receipt Date: 20130731
  Transmission Date: 20140515
  Serious: No
  Sender: FDA-Public Use
  Company Number: US-TEVA-422396USA

PATIENT
  Sex: Female
  Weight: 59.93 kg

DRUGS (5)
  1. PROAIR HFA [Suspect]
     Indication: BRONCHOSPASM
  2. HYDROCODONE [Concomitant]
  3. SPIREVA [Concomitant]
  4. CARBIDOPA W/LEVODOPA [Concomitant]
  5. DULERA [Concomitant]

REACTIONS (2)
  - Abdominal discomfort [Unknown]
  - Non-cardiac chest pain [Not Recovered/Not Resolved]
